FAERS Safety Report 7094402-5 (Version None)
Quarter: 2010Q4

REPORT INFORMATION
  Report Type: 
  Country: None (occurrence: None)
  Receive Date: 20101110
  Receipt Date: 20101101
  Transmission Date: 20110411
  Serious: Yes (Other)
  Sender: FDA-Public Use
  Company Number: TW-JNJFOC-20101102242

PATIENT
  Sex: Female

DRUGS (2)
  1. INVEGA [Suspect]
     Indication: SCHIZOPHRENIA, RESIDUAL TYPE
     Route: 048
  2. TOPIRAMATE [Suspect]
     Indication: ILL-DEFINED DISORDER

REACTIONS (2)
  - BLOOD PROLACTIN INCREASED [None]
  - MENSTRUATION DELAYED [None]
